FAERS Safety Report 5387775-2 (Version None)
Quarter: 2007Q3

REPORT INFORMATION
  Report Type: 
  Country: None (occurrence: None)
  Receive Date: 20070712
  Receipt Date: 20070712
  Transmission Date: 20080115
  Serious: Yes (Life-Threatening, Hospitalization)
  Sender: FDA-Public Use
  Company Number: None

PATIENT
  Age: 58 Year
  Sex: Female
  Weight: 165 kg

DRUGS (12)
  1. NEXAVAR [Suspect]
     Indication: RENAL CELL CARCINOMA STAGE UNSPECIFIED
     Dosage: 200 MG BID PO
     Route: 048
     Dates: start: 20061101, end: 20070706
  2. GLIPIZIDE ER [Concomitant]
  3. AVANDIA [Concomitant]
  4. KLOR-CON [Concomitant]
  5. MAVIK [Concomitant]
  6. ALLOPURINOL [Concomitant]
  7. ZYRTEC [Concomitant]
  8. DOLOBID [Concomitant]
  9. LASIX [Concomitant]
  10. VYTORIN [Concomitant]
  11. CENTRUM SILVER [Concomitant]
  12. TOPROL-XL [Concomitant]

REACTIONS (4)
  - ABDOMINAL ABSCESS [None]
  - DIVERTICULAR PERFORATION [None]
  - LARGE INTESTINE PERFORATION [None]
  - PNEUMOPERITONEUM [None]
